FAERS Safety Report 8433757-3 (Version None)
Quarter: 2012Q2

REPORT INFORMATION
  Report Type: 
  Country: None (occurrence: None)
  Receive Date: 20120613
  Receipt Date: 20120601
  Transmission Date: 20120825
  Serious: Yes (Life-Threatening, Hospitalization, Disabling)
  Sender: FDA-Public Use
  Company Number: CA-CELGENEUS-028-21880-11092220

PATIENT
  Sex: Female

DRUGS (11)
  1. REVLIMID [Suspect]
     Indication: MULTIPLE MYELOMA
     Dosage: 10 MILLIGRAM
     Route: 048
     Dates: start: 20110826, end: 20110916
  2. DILAUDID [Concomitant]
     Route: 065
  3. ASPIRIN [Concomitant]
     Route: 065
  4. CEFAZOLIN [Concomitant]
     Dosage: 1 GRAM
     Route: 041
  5. ACYCLOVIR [Concomitant]
     Route: 065
  6. BENADRYL [Concomitant]
     Route: 065
  7. CALCIUM [Concomitant]
     Route: 065
  8. CEPHALEXIN [Concomitant]
     Route: 048
  9. VITAMIN D [Concomitant]
     Route: 065
  10. GRAVOL TAB [Concomitant]
     Route: 065
  11. NITROFURANTOIN [Concomitant]
     Route: 065

REACTIONS (4)
  - MYOCARDITIS [None]
  - VENTRICULAR TACHYCARDIA [None]
  - CARDIOMYOPATHY [None]
  - CARDIAC FAILURE CONGESTIVE [None]
